FAERS Safety Report 7760929-3 (Version None)
Quarter: 2011Q3

REPORT INFORMATION
  Report Type: 
  Country: None (occurrence: None)
  Receive Date: 20110919
  Receipt Date: 20110427
  Transmission Date: 20111222
  Serious: Yes (Death, Other)
  Sender: FDA-Public Use
  Company Number: PHFR2011IE02717

PATIENT
  Sex: Male

DRUGS (6)
  1. CLOZAPINE [Suspect]
     Route: 048
     Dates: start: 20060224
  2. ATORVASTATIN [Concomitant]
     Indication: HYPERLIPIDAEMIA
     Dosage: 10 MG/DAY
     Route: 048
     Dates: start: 20060101
  3. CITALOPRAM HYDROBROMIDE [Concomitant]
     Indication: DEPRESSION
     Dosage: 40 MG/DAY
     Dates: start: 20060101
  4. LANSOPRAZOLE [Concomitant]
     Indication: GASTROOESOPHAGEAL REFLUX DISEASE
     Dosage: 30 MG/DAY
     Route: 048
  5. CLOZAPINE [Suspect]
     Indication: SCHIZOPHRENIA
     Dosage: 750 MG/DAY
     Route: 048
     Dates: start: 20050101
  6. MULTI-VITAMINS [Concomitant]
     Dosage: 1 DF/DAY
     Route: 048
     Dates: start: 20070101

REACTIONS (4)
  - DEATH [None]
  - PALPITATIONS [None]
  - HYPERLIPIDAEMIA [None]
  - GASTROOESOPHAGEAL REFLUX DISEASE [None]
